FAERS Safety Report 12617364 (Version 1)
Quarter: 2016Q3

REPORT INFORMATION
  Report Type: Spontaneous
  Country: DE (occurrence: DE)
  Receive Date: 20160803
  Receipt Date: 20160803
  Transmission Date: 20161109
  Serious: Yes (Other)
  Sender: FDA-Public Use
  Company Number: DE-ACCORD-042783

PATIENT
  Age: 52 Year
  Sex: Female
  Weight: 47 kg

DRUGS (1)
  1. PACLITAXEL ACCORD [Suspect]
     Active Substance: PACLITAXEL
     Indication: OVARIAN CANCER
     Dosage: STRENGTH: 6MG/ML, 300 MG/50ML?FROM 11:00-11:10
     Route: 042
     Dates: start: 20160420

REACTIONS (2)
  - Blood pressure increased [Recovered/Resolved]
  - Coccydynia [Recovered/Resolved]

NARRATIVE: CASE EVENT DATE: 20160420
